FAERS Safety Report 8523983-7 (Version None)
Quarter: 2012Q3

REPORT INFORMATION
  Report Type: 
  Country: None (occurrence: None)
  Receive Date: 20120720
  Receipt Date: 20120710
  Transmission Date: 20120928
  Serious: Yes (Hospitalization)
  Sender: FDA-Public Use
  Company Number: FR-SANOFI-AVENTIS-2012SA048905

PATIENT
  Age: 75 Year
  Sex: Male

DRUGS (5)
  1. LASIX [Suspect]
     Route: 048
     Dates: end: 20120426
  2. CORDARONE [Concomitant]
     Route: 048
  3. PLAVIX [Concomitant]
     Route: 048
  4. ATORVASTATIN [Concomitant]
     Route: 048
  5. POTASSIUM CHLORIDE [Concomitant]
     Route: 048

REACTIONS (4)
  - CONVULSION [None]
  - DEHYDRATION [None]
  - HYPONATRAEMIA [None]
  - HYPOKALAEMIA [None]
